FAERS Safety Report 7076956-8 (Version None)
Quarter: 2010Q4

REPORT INFORMATION
  Report Type: 
  Country: None (occurrence: None)
  Receive Date: 20101101
  Receipt Date: 20101021
  Transmission Date: 20110411
  Serious: Yes (Death, Life-Threatening, Hospitalization, Disabling)
  Sender: FDA-Public Use
  Company Number: JP-GENZYME-THYM-1001933

PATIENT
  Sex: Male
  Weight: 80 kg

DRUGS (10)
  1. THYMOGLOBULIN [Suspect]
     Indication: ACUTE GRAFT VERSUS HOST DISEASE
     Dosage: 100 MG, QD
     Route: 042
     Dates: start: 20100205, end: 20100209
  2. TACROLIMUS [Concomitant]
     Indication: PREMEDICATION
     Dosage: UNK
     Dates: start: 20091221, end: 20100225
  3. TACROLIMUS [Concomitant]
     Indication: PROPHYLAXIS AGAINST GRAFT VERSUS HOST DISEASE
  4. CEFTAZIDIME [Concomitant]
     Indication: INFECTION PROPHYLAXIS
     Dosage: UNK
     Route: 065
     Dates: start: 20100125, end: 20100206
  5. METHYLPREDNISOLONE SODIUM SUCCINATE [Concomitant]
     Indication: ACUTE GRAFT VERSUS HOST DISEASE
     Dosage: UNK
     Route: 065
     Dates: start: 20100129, end: 20100222
  6. METHYLPREDNISOLONE SODIUM SUCCINATE [Concomitant]
     Indication: STEM CELL TRANSPLANT
  7. VANCOMYCIN HYDROCHLORIDE [Concomitant]
     Indication: INFECTION PROPHYLAXIS
     Dosage: UNK
     Route: 065
     Dates: start: 20100201, end: 20100206
  8. CEFPIROME SULFATE [Concomitant]
     Indication: INFECTION PROPHYLAXIS
     Dosage: UNK
     Route: 065
     Dates: start: 20100207, end: 20100215
  9. RED BLOOD CELLS, CONCENTRATED [Concomitant]
     Indication: NON-HODGKIN'S LYMPHOMA
     Dosage: UNK
     Route: 065
     Dates: start: 20100208, end: 20100215
  10. PLATELETS, CONCENTRATED [Concomitant]
     Indication: NON-HODGKIN'S LYMPHOMA
     Dosage: UNK
     Route: 065
     Dates: start: 20100208, end: 20100225

REACTIONS (4)
  - CYTOMEGALOVIRUS INFECTION [None]
  - DISEASE PROGRESSION [None]
  - MULTI-ORGAN FAILURE [None]
  - OEDEMA [None]
